FAERS Safety Report 8356122-6 (Version None)
Quarter: 2012Q2

REPORT INFORMATION
  Report Type: 
  Country: None (occurrence: None)
  Receive Date: 20120514
  Receipt Date: 20120507
  Transmission Date: 20120825
  Serious: Yes (Other)
  Sender: FDA-Public Use
  Company Number: US-UCBSA-056942

PATIENT
  Age: 46 Year

DRUGS (1)
  1. CIMZIA [Suspect]

REACTIONS (1)
  - DEMYELINATING POLYNEUROPATHY [None]
